FAERS Safety Report 17767197 (Version 1)
Quarter: 2020Q2

REPORT INFORMATION
  Report Type: Spontaneous
  Country: US (occurrence: US)
  Receive Date: 20200511
  Receipt Date: 20200511
  Transmission Date: 20200714
  Serious: Yes (Other)
  Sender: FDA-Public Use
  Company Number: US-AMARIN PHARMA, INC.-2020AMR000307

PATIENT
  Age: 67 Year
  Sex: Female
  Weight: 83.99 kg

DRUGS (2)
  1. VASCEPA [Suspect]
     Active Substance: ICOSAPENT ETHYL
     Indication: BLOOD TRIGLYCERIDES INCREASED
     Route: 048
     Dates: start: 2018
  2. CRESTOR [Concomitant]
     Active Substance: ROSUVASTATIN CALCIUM
     Indication: BLOOD CHOLESTEROL INCREASED
     Route: 048
     Dates: start: 2018

REACTIONS (9)
  - Product coating issue [Unknown]
  - Memory impairment [Unknown]
  - Underdose [Unknown]
  - Knee arthroplasty [Recovering/Resolving]
  - Off label use [Unknown]
  - Product odour abnormal [Unknown]
  - Dysgeusia [Unknown]
  - Product adhesion issue [Unknown]
  - Product physical issue [Unknown]

NARRATIVE: CASE EVENT DATE: 201912
